FAERS Safety Report 4982594-0 (Version None)
Quarter: 2006Q1

REPORT INFORMATION
  Report Type: 
  Country: None (occurrence: None)
  Receive Date: 20060227
  Receipt Date: 20050607
  Transmission Date: 20060701
  Serious: Yes (Life-Threatening)
  Sender: FDA-Public Use
  Company Number: WAES 0506USA01260

PATIENT
  Age: 62 Year
  Sex: Female

DRUGS (6)
  1. ZOCOR [Suspect]
     Dosage: PO
     Route: 048
     Dates: start: 20050524, end: 20050526
  2. HYDRODIURIL [Concomitant]
  3. LESCOL [Concomitant]
  4. PRINIVIL [Concomitant]
  5. AMITRIPTYLEIN HYDROCHLORIDE [Concomitant]
  6. ATENOLOL [Concomitant]

REACTIONS (2)
  - DRUG ADMINISTRATION ERROR [None]
  - NAUSEA [None]
